FAERS Safety Report 6409821-7 (Version None)
Quarter: 2009Q4

REPORT INFORMATION
  Report Type: 
  Country: None (occurrence: None)
  Receive Date: 20091022
  Receipt Date: 20090928
  Transmission Date: 20100525
  Serious: Yes (Hospitalization, Other)
  Sender: FDA-Public Use
  Company Number: ES-JNJFOC-20091006667

PATIENT
  Age: 81 Year
  Sex: Female

DRUGS (5)
  1. HALOPERIDOL [Suspect]
     Indication: PROPHYLAXIS
     Route: 065
  2. LITHIUM [Interacting]
     Indication: DRUG USE FOR UNKNOWN INDICATION
     Route: 065
  3. ELONTRIL [Suspect]
     Route: 048
     Dates: end: 20090701
  4. ELONTRIL [Suspect]
     Indication: MAJOR DEPRESSION
     Route: 048
     Dates: end: 20090701
  5. ANAFRANIL [Suspect]
     Indication: MAJOR DEPRESSION
     Route: 048
     Dates: start: 20090701, end: 20090701

REACTIONS (4)
  - DEPRESSION [None]
  - DRUG INTERACTION [None]
  - PSYCHOTIC DISORDER [None]
  - SEROTONIN SYNDROME [None]
